FAERS Safety Report 8505270-6 (Version None)
Quarter: 2012Q3

REPORT INFORMATION
  Report Type: 
  Country: None (occurrence: None)
  Receive Date: 20120712
  Receipt Date: 20120710
  Transmission Date: 20120928
  Serious: Yes (Other)
  Sender: FDA-Public Use
  Company Number: JP-SP-2010-06012

PATIENT
  Sex: Male

DRUGS (5)
  1. ASPIRIN [Concomitant]
     Indication: CEREBRAL INFARCTION
     Route: 065
  2. DILTIAZEM HCL [Concomitant]
     Indication: HYPERTENSION
     Route: 065
  3. IMMUCYST [Suspect]
     Indication: BLADDER CANCER
     Route: 065
     Dates: start: 20100715, end: 20100902
  4. VALSARTAN [Concomitant]
     Indication: HYPERTENSION
     Route: 065
  5. ATORVASTATIN [Concomitant]
     Indication: HYPERLIPIDAEMIA
     Route: 065

REACTIONS (2)
  - PYREXIA [None]
  - BOVINE TUBERCULOSIS [None]
